FAERS Safety Report 5076877-6 (Version None)
Quarter: 2006Q3

REPORT INFORMATION
  Report Type: 
  Country: None (occurrence: None)
  Receive Date: 20060725
  Receipt Date: 20060321
  Transmission Date: 20061208
  Serious: No
  Sender: FDA-Public Use
  Company Number: 200610651BWH

PATIENT
  Age: 65 Year
  Sex: Male
  Weight: 77.1115 kg

DRUGS (2)
  1. NEXAVAR [Suspect]
     Indication: RENAL CELL CARCINOMA STAGE UNSPECIFIED
  2. TRIAMTERENE AND HYDROCHLOROTHIAZIDE [Concomitant]

REACTIONS (15)
  - ALOPECIA [None]
  - DRY SKIN [None]
  - DYSPHONIA [None]
  - FLUSHING [None]
  - HEADACHE [None]
  - HYPERAESTHESIA [None]
  - PAIN IN EXTREMITY [None]
  - PAIN OF SKIN [None]
  - PARAESTHESIA [None]
  - PYREXIA [None]
  - RASH MACULAR [None]
  - RASH PRURITIC [None]
  - RHINALGIA [None]
  - SWELLING FACE [None]
  - URTICARIA GENERALISED [None]
